FAERS Safety Report 4876037-5 (Version None)
Quarter: 2005Q4

REPORT INFORMATION
  Report Type: 
  Country: None (occurrence: None)
  Receive Date: 20051206
  Receipt Date: 20051029
  Transmission Date: 20060501
  Serious: No
  Sender: FDA-Public Use
  Company Number: USA0511112384

PATIENT
  Sex: Male

DRUGS (1)
  1. CYMBALTA [Suspect]
     Indication: DEPRESSION

REACTIONS (1)
  - PSYCHOMOTOR HYPERACTIVITY [None]
